FAERS Safety Report 5307158-0 (Version None)
Quarter: 2007Q2

REPORT INFORMATION
  Report Type: 
  Country: None (occurrence: None)
  Receive Date: 20070425
  Receipt Date: 20070124
  Transmission Date: 20071010
  Serious: No
  Sender: FDA-Public Use
  Company Number: US-AMGEN-US208270

PATIENT
  Sex: Male

DRUGS (2)
  1. VECTIBIX [Suspect]
     Indication: COLORECTAL CANCER
  2. AVASTIN [Concomitant]
     Dates: start: 20050101

REACTIONS (2)
  - DROOLING [None]
  - SALIVARY HYPERSECRETION [None]
